FAERS Safety Report 17584136 (Version 1)
Quarter: 2020Q1

REPORT INFORMATION
  Report Type: Report from Study
  Country: None (occurrence: CO)
  Receive Date: 20200326
  Receipt Date: 20200326
  Transmission Date: 20200409
  Serious: Yes (Death, Hospitalization, Other)
  Sender: FDA-Public Use
  Company Number: CO-ABBVIE-20K-036-3321285-00

PATIENT
  Age: 80 Year
  Sex: Male
  Weight: 62 kg

DRUGS (1)
  1. IMBRUVICA [Suspect]
     Active Substance: IBRUTINIB
     Indication: B-CELL SMALL LYMPHOCYTIC LYMPHOMA
     Route: 048
     Dates: start: 20190626, end: 202003

REACTIONS (6)
  - Dizziness [Not Recovered/Not Resolved]
  - Pyrexia [Not Recovered/Not Resolved]
  - Hypotension [Recovering/Resolving]
  - Influenza [Recovering/Resolving]
  - Respiratory arrest [Fatal]
  - General physical health deterioration [Recovering/Resolving]

NARRATIVE: CASE EVENT DATE: 202003
